FAERS Safety Report 12856732 (Version 1)
Quarter: 2016Q4

REPORT INFORMATION
  Report Type: Spontaneous
  Country: US (occurrence: US)
  Receive Date: 20161017
  Receipt Date: 20161017
  Transmission Date: 20170207
  Serious: Yes (Other)
  Sender: FDA-Public Use
  Company Number: None

PATIENT
  Age: 68 Year
  Sex: Female
  Weight: 70.65 kg

DRUGS (4)
  1. ASPIRIN. [Concomitant]
     Active Substance: ASPIRIN
  2. CALCIUM+D3 [Concomitant]
  3. TOPISULF [Concomitant]
     Active Substance: SULFACETAMIDE SODIUM\SULFUR
  4. CLOPIDOGREL [Suspect]
     Active Substance: CLOPIDOGREL BISULFATE
     Indication: TRANSIENT ISCHAEMIC ATTACK
     Dosage: ?          QUANTITY:1 TABLET(S);?
     Route: 048
     Dates: start: 20160920

REACTIONS (4)
  - Asthenia [None]
  - Fatigue [None]
  - Activities of daily living impaired [None]
  - Abasia [None]

NARRATIVE: CASE EVENT DATE: 20160920
